FAERS Safety Report 9785528 (Version 1)
Quarter: 2013Q4

REPORT INFORMATION
  Report Type: Spontaneous
  Country: JP (occurrence: JP)
  Receive Date: 20131227
  Receipt Date: 20131227
  Transmission Date: 20140711
  Serious: Yes (Disabling)
  Sender: FDA-Public Use
  Company Number: JP-ASTELLAS-2013JP014139

PATIENT
  Age: 65 Year
  Sex: Female

DRUGS (6)
  1. PROGRAF [Suspect]
     Indication: RHEUMATOID ARTHRITIS
     Dosage: UNK
     Route: 048
  2. ANTIBACTERIAL AGENT [Concomitant]
     Route: 065
  3. CHONDROITIN [Concomitant]
     Route: 065
  4. TIMOPTOL [Concomitant]
     Dosage: UNK
     Route: 047
  5. TIMOPTOL [Concomitant]
     Dosage: UNK
     Route: 047
     Dates: start: 20131113
  6. EYE DROPS [Concomitant]
     Route: 047

REACTIONS (1)
  - Intraocular pressure increased [Recovered/Resolved]
